FAERS Safety Report 14654742 (Version 2)
Quarter: 2018Q3

REPORT INFORMATION
  Report Type: Report from Study
  Country: CA (occurrence: CA)
  Receive Date: 20180319
  Receipt Date: 20180709
  Transmission Date: 20181010
  Serious: Yes (Other)
  Sender: FDA-Public Use
  Company Number: CA-GLAXOSMITHKLINE-CA2017GSK040868

PATIENT
  Age: 66 Year
  Sex: Female

DRUGS (2)
  1. MEPOLIZUMAB [Suspect]
     Active Substance: MEPOLIZUMAB
     Indication: ASTHMA
     Dosage: 100 MG, Z
     Route: 042
     Dates: start: 20170220
  2. MEPOLIZUMAB [Suspect]
     Active Substance: MEPOLIZUMAB
     Dosage: 100 MG, UNK
     Route: 042

REACTIONS (6)
  - Upper respiratory tract infection [Unknown]
  - Asthma [Unknown]
  - Vaginal haemorrhage [Unknown]
  - Sinus operation [Unknown]
  - Blood pressure increased [Unknown]
  - Cataract [Unknown]

NARRATIVE: CASE EVENT DATE: 2017
